FAERS Safety Report 6089778-1 (Version None)
Quarter: 2009Q1

REPORT INFORMATION
  Report Type: 
  Country: None (occurrence: None)
  Receive Date: 20090220
  Receipt Date: 20090205
  Transmission Date: 20090719
  Serious: Yes (Life-Threatening, Hospitalization, Disabling)
  Sender: FDA-Public Use
  Company Number: 430030M09USA

PATIENT
  Age: 78 Year
  Sex: Male
  Weight: 87.771 kg

DRUGS (6)
  1. NOVANTRONE [Suspect]
     Indication: PROSTATE CANCER
     Dosage: 25.2 MG, 1 IN 21 DAYS; INTRAVENOUS
     Route: 042
     Dates: start: 20090113, end: 20090113
  2. CETUXIMAB (CETUXIMAB) [Suspect]
     Indication: PROSTATE CANCER
     Dosage: 840 MG, ONCE, INTRAVENOUS
     Route: 042
     Dates: start: 20090113, end: 20090113
  3. PREDNISONE TAB [Concomitant]
  4. MULTIVITAMIN (MULTIVITAMIN) [Concomitant]
  5. DARVOCET [Concomitant]
  6. SUN CHLORELLA (ALL OTHER THERAPEUTIC PRODUCTS) [Concomitant]

REACTIONS (19)
  - ACUTE MYOCARDIAL INFARCTION [None]
  - CORONARY ARTERY DISEASE [None]
  - CORONARY ARTERY OCCLUSION [None]
  - GASTROINTESTINAL HAEMORRHAGE [None]
  - HAEMATOCRIT DECREASED [None]
  - HAEMOGLOBIN DECREASED [None]
  - HYPERLIPIDAEMIA [None]
  - HYPOTENSION [None]
  - INJECTION SITE THROMBOSIS [None]
  - INTESTINAL MASS [None]
  - LEFT VENTRICULAR DYSFUNCTION [None]
  - LEUKOPENIA [None]
  - MITRAL VALVE INCOMPETENCE [None]
  - NEUTROPENIA [None]
  - ORTHOSTATIC HYPOTENSION [None]
  - PARANEOPLASTIC SYNDROME [None]
  - PHLEBITIS [None]
  - RECTAL OBSTRUCTION [None]
  - TRACHEOBRONCHITIS VIRAL [None]
